FAERS Safety Report 12797442 (Version 2)
Quarter: 2016Q4

REPORT INFORMATION
  Report Type: Spontaneous
  Country: BR (occurrence: BR)
  Receive Date: 20160930
  Receipt Date: 20161007
  Transmission Date: 20170207
  Serious: Yes (Other)
  Sender: FDA-Public Use
  Company Number: PHHY2016BR131878

PATIENT
  Sex: Male
  Weight: 13 kg

DRUGS (1)
  1. AMOXICILLIN + CLAVULANATE POTASSIUM [Suspect]
     Active Substance: AMOXICILLIN\CLAVULANATE POTASSIUM
     Indication: EAR INFECTION
     Dosage: 4 ML, TID
     Route: 048
     Dates: start: 20160919, end: 20160921

REACTIONS (2)
  - Hypothermia [Recovered/Resolved]
  - Incorrect product storage [Recovered/Resolved]
